FAERS Safety Report 7436602-8 (Version None)
Quarter: 2011Q2

REPORT INFORMATION
  Report Type: 
  Country: None (occurrence: None)
  Receive Date: 20110418
  Receipt Date: 20110404
  Transmission Date: 20111010
  Serious: Yes (Death, Life-Threatening)
  Sender: FDA-Public Use
  Company Number: 2011001486

PATIENT
  Age: 51 Year
  Sex: Male

DRUGS (5)
  1. SIMVASTATIN [Concomitant]
  2. OXYCONTIN [Concomitant]
  3. ATENOLOL [Concomitant]
  4. MIRTAZAPINE [Concomitant]
  5. TARCEVA [Suspect]
     Indication: NON-SMALL CELL LUNG CANCER
     Dosage: (150 MG,1 X 1 D), ORAL  OOO
     Route: 048
     Dates: start: 20100603, end: 20110103

REACTIONS (4)
  - ANGINA UNSTABLE [None]
  - MYOCARDIAL INFARCTION [None]
  - CARDIAC ARREST [None]
  - PULMONARY EMBOLISM [None]
